FAERS Safety Report 16628749 (Version 1)
Quarter: 2019Q3

REPORT INFORMATION
  Report Type: Spontaneous
  Country: ES (occurrence: ES)
  Receive Date: 20190725
  Receipt Date: 20190725
  Transmission Date: 20191004
  Serious: Yes (Hospitalization)
  Sender: FDA-Public Use
  Company Number: ES-SUN PHARMACEUTICAL INDUSTRIES LTD-2019RR-214785

PATIENT
  Age: 70 Year
  Sex: Female

DRUGS (4)
  1. ACETILSALICILICO ACIDO [Concomitant]
     Active Substance: ASPIRIN
     Indication: THROMBOSIS PROPHYLAXIS
     Dosage: 100 MILLIGRAM, 1DOSE/24HOUR
     Route: 048
     Dates: start: 201801
  2. METAMIZOL [Suspect]
     Active Substance: METAMIZOLE SODIUM
     Indication: BACK PAIN
     Dosage: 575 MILLIGRAM, 1DOSE/8HR
     Route: 048
     Dates: start: 20190318, end: 20190326
  3. ATORVASTATINA [Concomitant]
     Active Substance: ATORVASTATIN
     Indication: PRODUCT USED FOR UNKNOWN INDICATION
     Dosage: 40 MILLIGRAM, 1DOSE/24HOUR
     Route: 048
     Dates: start: 201801
  4. OMEPRAZOLE. [Suspect]
     Active Substance: OMEPRAZOLE
     Indication: PRODUCT USED FOR UNKNOWN INDICATION
     Dosage: 20 MILLIGRAM, 1DOSE/12HOUR
     Route: 048
     Dates: start: 201801, end: 201903

REACTIONS (1)
  - Agranulocytosis [Recovered/Resolved]

NARRATIVE: CASE EVENT DATE: 20190325
